FAERS Safety Report 4926752-X (Version None)
Quarter: 2006Q1

REPORT INFORMATION
  Report Type: 
  Country: None (occurrence: None)
  Receive Date: 20060228
  Receipt Date: 20050609
  Transmission Date: 20060701
  Serious: Yes (Disabling)
  Sender: FDA-Public Use
  Company Number: US-GLAXOSMITHKLINE-A0562039A

PATIENT
  Age: 43 Year
  Sex: Female

DRUGS (5)
  1. LAMICTAL [Suspect]
     Indication: MOOD SWINGS
     Dosage: 25MG PER DAY
     Route: 048
     Dates: start: 20050531
  2. WELLBUTRIN SR [Concomitant]
  3. PERCOCET [Concomitant]
  4. PRILOSEC [Concomitant]
  5. CELEXA [Concomitant]

REACTIONS (5)
  - DIZZINESS [None]
  - HEADACHE [None]
  - NAUSEA [None]
  - PSYCHOTIC DISORDER [None]
  - VOMITING [None]
